FAERS Safety Report 4376317-6 (Version None)
Quarter: 2004Q2

REPORT INFORMATION
  Report Type: 
  Country: None (occurrence: None)
  Receive Date: 20040608
  Receipt Date: 20030116
  Transmission Date: 20050107
  Serious: Yes (Other)
  Sender: FDA-Public Use
  Company Number: 200310209BCC

PATIENT
  Age: 61 Year
  Sex: Female

DRUGS (2)
  1. ALEVE [Suspect]
     Indication: PAIN
     Dosage: 440 MG, ONCE, ORAL
     Route: 048
     Dates: start: 20011208
  2. NORVASC [Concomitant]

REACTIONS (5)
  - EYE SWELLING [None]
  - FEELING HOT [None]
  - SEPSIS [None]
  - SKIN LESION [None]
  - SWELLING [None]
